FAERS Safety Report 10264570 (Version 1)
Quarter: 2014Q2

REPORT INFORMATION
  Report Type: Report from Study
  Country: IT (occurrence: IT)
  Receive Date: 20140627
  Receipt Date: 20140627
  Transmission Date: 20141212
  Serious: Yes (Hospitalization)
  Sender: FDA-Public Use
  Company Number: IT-ROCHE-1422753

PATIENT
  Age: 58 Year
  Sex: Female
  Weight: 52 kg

DRUGS (6)
  1. IRINOTECAN [Suspect]
     Indication: COLORECTAL CANCER METASTATIC
     Dosage: LAST DOSE PRIOR TO SAE: 26/FEB/2014
     Route: 042
     Dates: start: 20130104, end: 20140320
  2. OXALIPLATIN [Suspect]
     Indication: COLORECTAL CANCER METASTATIC
     Dosage: LAST DOSE PRIOR TO SAE: 26/FEB/2014
     Route: 042
     Dates: start: 20130104, end: 20140320
  3. FLUOROURACIL [Suspect]
     Indication: COLORECTAL CANCER METASTATIC
     Dosage: LAST DOSE PRIOR TO SAE: 26/FEB/2014
     Route: 042
     Dates: start: 20130104, end: 20140320
  4. BEVACIZUMAB [Suspect]
     Indication: COLORECTAL CANCER METASTATIC
     Route: 065
  5. FOLIC ACID [Suspect]
     Indication: COLORECTAL CANCER METASTATIC
     Route: 065
  6. DEXAMETHASONE [Concomitant]
     Route: 065
     Dates: start: 20140611

REACTIONS (3)
  - Mallory-Weiss syndrome [Recovered/Resolved]
  - Jaundice cholestatic [Not Recovered/Not Resolved]
  - Hyperbilirubinaemia [Not Recovered/Not Resolved]
